FAERS Safety Report 7492654-0 (Version None)
Quarter: 2011Q2

REPORT INFORMATION
  Report Type: 
  Country: None (occurrence: None)
  Receive Date: 20110519
  Receipt Date: 20091123
  Transmission Date: 20111010
  Serious: Yes (Hospitalization, Other)
  Sender: FDA-Public Use
  Company Number: US-BAYER-200940857NA

PATIENT
  Age: 54 Year
  Sex: Male
  Weight: 123 kg

DRUGS (32)
  1. PROTAMINE SULFATE [Concomitant]
     Dosage: 400 MG, UNK
     Route: 042
  2. SUFENTA PRESERVATIVE FREE [Concomitant]
     Dosage: 100 MG, UNK
     Route: 042
     Dates: start: 20050204, end: 20050204
  3. EPHEDRINE [Concomitant]
     Dosage: 10 MG, UNK
     Route: 042
     Dates: start: 20050204, end: 20050204
  4. CORLOPAM [Concomitant]
     Dosage: 40MG/250CC AT 8CC/HR
     Route: 042
     Dates: start: 20050204, end: 20050204
  5. LASIX [Concomitant]
     Dosage: 40 MG, UNK
     Route: 042
     Dates: start: 20050204, end: 20050204
  6. ZETIA [Concomitant]
     Dosage: 10 MG, UNK
     Route: 048
     Dates: start: 20050202
  7. VERSED [Concomitant]
     Dosage: 10 MG, UNK
     Route: 042
     Dates: start: 20050204, end: 20050204
  8. LEVOPHED [Concomitant]
     Dosage: UNK
     Route: 042
     Dates: start: 20050204, end: 20050204
  9. KEFZOL [Concomitant]
     Dosage: 1 G, UNK
     Route: 042
     Dates: start: 20050204, end: 20050204
  10. TRASYLOL [Suspect]
     Dosage: 50CC/HOUR
     Route: 042
     Dates: end: 20050204
  11. GLYBURIDE [Concomitant]
     Indication: DIABETES MELLITUS
     Dosage: 5 MG, QD
     Route: 048
     Dates: start: 20040101, end: 20050101
  12. HEPARIN [Concomitant]
     Dosage: 40000 U, UNK
     Route: 042
     Dates: start: 20050204, end: 20050204
  13. TRICOR [Concomitant]
     Dosage: 160 MG, UNK
     Route: 048
     Dates: start: 20040503
  14. NEO-SYNEPHRINOL [Concomitant]
     Dosage: 5MG/250CC AT 20CC/HR
     Route: 042
     Dates: start: 20050204, end: 20050204
  15. NITROGLYCERIN [Concomitant]
     Dosage: 50MG/250CC AT 5-10
     Route: 042
     Dates: start: 20050204, end: 20050204
  16. AVANDIA [Concomitant]
     Dosage: UNK
     Dates: start: 20040101, end: 20050101
  17. ALTACE [Concomitant]
     Dosage: 10 MG, BID
     Route: 048
  18. DIOVAN [Concomitant]
     Dosage: 160 MG, BID
     Route: 048
  19. LASIX [Concomitant]
     Dosage: 10 MG, QD
     Dates: start: 20030905
  20. ACETYLSALICYLIC ACID SRT [Concomitant]
     Route: 048
  21. NEURONTIN [Concomitant]
     Dosage: 300 MG, BID
     Route: 048
  22. LIPITOR [Concomitant]
     Dosage: 400 MG, QD
     Route: 048
  23. ALPRAZOLAM [Concomitant]
     Dosage: 25 MG, UNK
     Route: 048
  24. NORVASC [Concomitant]
     Dosage: 2.5 MG, QON
     Route: 048
  25. LIDOCAINE [Concomitant]
     Dosage: UNK
     Route: 042
     Dates: start: 20050204, end: 20050204
  26. FENTANYL [Concomitant]
     Dosage: 2CC
     Route: 042
  27. VERPAMIL HCL [Concomitant]
     Dosage: 2 ML, UNK
     Route: 042
     Dates: start: 20050204, end: 20050204
  28. TRASYLOL [Suspect]
     Indication: CORONARY ARTERY BYPASS
     Dosage: 200 CC PUMP PRIME
     Route: 042
     Dates: start: 20050204
  29. TRASYLOL [Suspect]
     Dosage: 200 ML BOLUS
     Route: 042
  30. PEPCID [Concomitant]
     Dosage: 40 MG, QD
     Route: 048
     Dates: start: 20050202
  31. PRIMACOR [Concomitant]
     Dosage: 200MG/250CC AT 10CC/HR
     Route: 042
     Dates: start: 20050204, end: 20050204
  32. PROPOFOL [Concomitant]
     Dosage: UNK
     Route: 042
     Dates: start: 20050204, end: 20050204

REACTIONS (9)
  - RENAL FAILURE [None]
  - DEPRESSION [None]
  - ANXIETY [None]
  - INJURY [None]
  - RENAL TRANSPLANT [None]
  - UNEVALUABLE EVENT [None]
  - FEAR [None]
  - PAIN [None]
  - ANHEDONIA [None]
